FAERS Safety Report 14393732 (Version 1)
Quarter: 2018Q1

REPORT INFORMATION
  Report Type: Spontaneous
  Country: US (occurrence: US)
  Receive Date: 20180115
  Receipt Date: 20180115
  Transmission Date: 20180509
  Serious: Yes (Other)
  Sender: FDA-Public Use
  Company Number: None

PATIENT
  Age: 68 Year
  Sex: Female
  Weight: 78.75 kg

DRUGS (11)
  1. NIACIN. [Concomitant]
     Active Substance: NIACIN
  2. FISH OIL [Concomitant]
     Active Substance: FISH OIL
  3. PRADAXA [Suspect]
     Active Substance: DABIGATRAN ETEXILATE MESYLATE
     Indication: HYPERTENSION
     Dosage: ?          QUANTITY:60 CAPSULE(S);?
     Route: 048
  4. LISINOPRIL. [Concomitant]
     Active Substance: LISINOPRIL
  5. CALCIUM WITH VITAMIN D [Concomitant]
     Active Substance: CALCIUM\VITAMIN D
  6. SYNTHROID [Concomitant]
     Active Substance: LEVOTHYROXINE SODIUM
  7. MULTI VITAMIN [Concomitant]
     Active Substance: VITAMINS
  8. ASPIRIN. [Concomitant]
     Active Substance: ASPIRIN
  9. GLUCOSOMATE CONGLO [Concomitant]
  10. PRADAXA [Suspect]
     Active Substance: DABIGATRAN ETEXILATE MESYLATE
     Indication: ATRIAL FIBRILLATION
     Dosage: ?          QUANTITY:60 CAPSULE(S);?
     Route: 048
  11. MELOXICAM. [Concomitant]
     Active Substance: MELOXICAM

REACTIONS (5)
  - Apparent death [None]
  - Palpitations [None]
  - Atrial fibrillation [None]
  - Therapy cessation [None]
  - Joint swelling [None]

NARRATIVE: CASE EVENT DATE: 20171018
